FAERS Safety Report 6144594-7 (Version None)
Quarter: 2009Q2

REPORT INFORMATION
  Report Type: 
  Country: None (occurrence: None)
  Receive Date: 20090406
  Receipt Date: 20090323
  Transmission Date: 20091009
  Serious: Yes (Hospitalization, Other)
  Sender: FDA-Public Use
  Company Number: FI-GENENTECH-280372

PATIENT
  Sex: Male

DRUGS (6)
  1. AVASTIN [Suspect]
     Indication: COLORECTAL CANCER
     Dosage: 610 MG, Q3W
     Route: 042
     Dates: start: 20090119, end: 20090210
  2. XELODA [Suspect]
     Indication: COLORECTAL CANCER
     Dosage: 3000 MG, QD
     Route: 048
     Dates: start: 20090119
  3. CARDACE [Concomitant]
     Indication: DRUG USE FOR UNKNOWN INDICATION
  4. PRIMPERAN [Concomitant]
     Indication: DRUG USE FOR UNKNOWN INDICATION
  5. KYTRIL [Concomitant]
     Indication: DRUG USE FOR UNKNOWN INDICATION
  6. IRINOTECAN HCL [Concomitant]
     Indication: DRUG USE FOR UNKNOWN INDICATION
     Dosage: UNK
     Dates: start: 20090119, end: 20090210

REACTIONS (2)
  - METASTASIS [None]
  - PYREXIA [None]
